FAERS Safety Report 10478065 (Version 3)
Quarter: 2014Q4

REPORT INFORMATION
  Report Type: Spontaneous
  Country: US (occurrence: US)
  Receive Date: 20140926
  Receipt Date: 20141021
  Transmission Date: 20150528
  Serious: Yes (Other)
  Sender: FDA-Public Use
  Company Number: US-PFIZER INC-2014262897

PATIENT
  Age: 57 Year
  Sex: Female
  Weight: 83.45 kg

DRUGS (10)
  1. FENOFIBRATE. [Concomitant]
     Active Substance: FENOFIBRATE
     Indication: BLOOD CHOLESTEROL INCREASED
     Dosage: 150 MG, 1X/DAY
  2. BYSTOLIC [Concomitant]
     Active Substance: NEBIVOLOL HYDROCHLORIDE
     Indication: HYPERTENSION
     Dosage: 2 MG, 1X/DAY
     Route: 048
  3. ALPRAZOLAM. [Concomitant]
     Active Substance: ALPRAZOLAM
     Dosage: 1 MG, 3X/DAY
     Route: 048
     Dates: start: 20140924
  4. LYRICA [Suspect]
     Active Substance: PREGABALIN
     Indication: DIABETIC NEUROPATHY
  5. PLAVIX [Concomitant]
     Active Substance: CLOPIDOGREL BISULFATE
     Indication: CARDIOVASCULAR DISORDER
     Dosage: 75 MG, 1X/DAY
     Route: 048
  6. LYRICA [Suspect]
     Active Substance: PREGABALIN
     Indication: FIBROMYALGIA
     Dosage: 100 MG, 3X/DAY
     Route: 048
     Dates: end: 2014
  7. GLIBURIDE/METFORMIN HYDROCHLORIDE [Concomitant]
     Active Substance: GLYBURIDE\METFORMIN HYDROCHLORIDE
     Indication: DIABETES MELLITUS
     Dosage: 5 MG/50 MG,1X/DAY
  8. CRESTOR [Concomitant]
     Active Substance: ROSUVASTATIN CALCIUM
     Indication: BLOOD CHOLESTEROL INCREASED
     Dosage: 20 MG, 1X/DAY
  9. FOLBEE [Concomitant]
     Dosage: (CYANOCOBALAMIN:1 MG/ FOLIC ACID: 2.5 MG/ PYRIDOXINE: 25 MG TABLET)
     Route: 048
     Dates: start: 20140924
  10. OXYCODONE/ACETAMINOPHEN [Concomitant]
     Active Substance: ACETAMINOPHEN\OXYCODONE HYDROCHLORIDE
     Dosage: UNK (OXYCODONE: 10 MG/ACETAMINOPHEN 325MG
     Route: 048
     Dates: start: 20140924

REACTIONS (8)
  - Intervertebral disc protrusion [Unknown]
  - Headache [Unknown]
  - Pain in extremity [Unknown]
  - Back pain [Unknown]
  - Obesity [Unknown]
  - Nervousness [Unknown]
  - Drug withdrawal syndrome [Unknown]
  - Blood glucose increased [Unknown]

NARRATIVE: CASE EVENT DATE: 201409
